FAERS Safety Report 21891134 (Version 2)
Quarter: 2023Q2

REPORT INFORMATION
  Report Type: Report from Study
  Country: CN (occurrence: CN)
  Receive Date: 20230120
  Receipt Date: 20230427
  Transmission Date: 20230722
  Serious: Yes (Other)
  Sender: FDA-Public Use
  Company Number: CN-TAKEDA-2023TUS005399

PATIENT
  Age: 68 Year
  Sex: Male
  Weight: 50 kg

DRUGS (23)
  1. VEDOLIZUMAB [Suspect]
     Active Substance: VEDOLIZUMAB
     Indication: Colitis ulcerative
     Dosage: 300 MILLIGRAM
     Route: 042
     Dates: start: 20220804
  2. OCTREOTIDE ACETATE [Concomitant]
     Active Substance: OCTREOTIDE ACETATE
     Indication: Gastrointestinal disorder prophylaxis
     Dosage: 0.2 MILLIGRAM, Q12H
     Route: 058
     Dates: start: 20220730, end: 20220805
  3. OCTREOTIDE ACETATE [Concomitant]
     Active Substance: OCTREOTIDE ACETATE
     Dosage: 0.2 MILLIGRAM, Q12H
     Route: 058
     Dates: start: 20220805, end: 20220808
  4. DEXAMETHASONE SODIUM PHOSPHATE [Concomitant]
     Active Substance: DEXAMETHASONE SODIUM PHOSPHATE
     Indication: Inflammatory bowel disease
     Dosage: 5 MILLIGRAM, QD
     Route: 054
     Dates: start: 20220805, end: 20220808
  5. DEXAMETHASONE SODIUM PHOSPHATE [Concomitant]
     Active Substance: DEXAMETHASONE SODIUM PHOSPHATE
     Dosage: 5 MILLIGRAM, QOD
     Route: 054
     Dates: start: 20220809, end: 202209
  6. MESALAMINE [Concomitant]
     Active Substance: MESALAMINE
     Indication: Inflammatory bowel disease
     Dosage: UNK
     Dates: start: 20220724, end: 202210
  7. MESALAMINE [Concomitant]
     Active Substance: MESALAMINE
     Dosage: 2 GRAM, TID
     Route: 048
     Dates: start: 20230113
  8. ORNIDAZOLE [Concomitant]
     Active Substance: ORNIDAZOLE
     Indication: Anti-infective therapy
     Dosage: 0.5 GRAM, BID
     Route: 054
     Dates: start: 20220724, end: 20220808
  9. ORNIDAZOLE [Concomitant]
     Active Substance: ORNIDAZOLE
     Dosage: 0.5 GRAM, QOD
     Route: 054
     Dates: start: 20220809, end: 202209
  10. THROMBIN [Concomitant]
     Active Substance: THROMBIN
     Indication: Inflammatory bowel disease
     Dosage: UNK UNK, QD
     Route: 054
     Dates: start: 20220724, end: 20220808
  11. THROMBIN [Concomitant]
     Active Substance: THROMBIN
     Dosage: UNK UNK, QOD
     Route: 054
     Dates: start: 20220809, end: 202209
  12. LIDOCAINE HYDROCHLORIDE [Concomitant]
     Active Substance: LIDOCAINE HYDROCHLORIDE
     Indication: Prophylaxis
     Dosage: 0.1 GRAM, QD
     Route: 054
     Dates: start: 20220724, end: 20220808
  13. LIDOCAINE HYDROCHLORIDE [Concomitant]
     Active Substance: LIDOCAINE HYDROCHLORIDE
     Dosage: 0.1 GRAM, QOD
     Route: 054
     Dates: start: 20220809, end: 202209
  14. SUCRALFATE [Concomitant]
     Active Substance: SUCRALFATE
     Indication: Inflammatory bowel disease
     Dosage: 1 GRAM, QD
     Route: 054
     Dates: start: 20220724, end: 20220808
  15. SUCRALFATE [Concomitant]
     Active Substance: SUCRALFATE
     Dosage: 1 GRAM, QOD
     Route: 054
     Dates: start: 20220809, end: 202209
  16. BACILLUS SUBTILIS [Concomitant]
     Active Substance: BACILLUS SUBTILIS
     Indication: Dysbiosis
     Dosage: 500 MILLIGRAM, TID
     Route: 048
     Dates: start: 20220724
  17. MONTMORILLONITE [Concomitant]
     Active Substance: MONTMORILLONITE
     Indication: Gastrointestinal disorder prophylaxis
     Dosage: 3 GRAM, TID
     Route: 048
     Dates: start: 20220724, end: 20220809
  18. RESORCINOL [Concomitant]
     Active Substance: RESORCINOL
     Indication: Analgesic therapy
     Dosage: 80 MILLIGRAM, QD
     Route: 042
     Dates: start: 20220724, end: 20220808
  19. RESORCINOL [Concomitant]
     Active Substance: RESORCINOL
     Indication: Prophylaxis
  20. POTASSIUM CHLORIDE [Concomitant]
     Active Substance: POTASSIUM CHLORIDE
     Indication: Electrolyte imbalance
     Dosage: 10 MILLILITER, QD
     Route: 042
     Dates: start: 20220726, end: 20220808
  21. GANCICLOVIR [Concomitant]
     Active Substance: GANCICLOVIR
     Indication: Antiviral prophylaxis
     Dosage: 0.25 GRAM, Q8HR
     Route: 042
     Dates: start: 20220726, end: 20220808
  22. FINASTERIDE [Concomitant]
     Active Substance: FINASTERIDE
     Indication: Benign prostatic hyperplasia
     Dosage: 5 MILLIGRAM, QD
     Route: 048
     Dates: start: 20220730, end: 202209
  23. TAMSULOSIN HYDROCHLORIDE [Concomitant]
     Active Substance: TAMSULOSIN HYDROCHLORIDE
     Indication: Benign prostatic hyperplasia
     Dosage: 0.2 MILLIGRAM, QD
     Route: 048
     Dates: start: 20220802, end: 202209

REACTIONS (1)
  - Leukopenia [Recovered/Resolved]

NARRATIVE: CASE EVENT DATE: 20220818
